FAERS Safety Report 6600279-1 (Version None)
Quarter: 2010Q1

REPORT INFORMATION
  Report Type: 
  Country: None (occurrence: None)
  Receive Date: 20100224
  Receipt Date: 20100215
  Transmission Date: 20100710
  Serious: Yes (Other)
  Sender: FDA-Public Use
  Company Number: US-PFIZER INC-2010014122

PATIENT
  Sex: Female
  Weight: 64.399 kg

DRUGS (4)
  1. CHANTIX [Suspect]
     Indication: SMOKING CESSATION THERAPY
     Dosage: 0.5 MG, 1X/DAY
     Route: 048
     Dates: start: 20100126
  2. CHANTIX [Suspect]
     Dosage: 1 MG, UNK
     Route: 048
  3. CHANTIX [Suspect]
     Dosage: 1.0 MG, 1X/DAY
     Dates: start: 20100101
  4. XANAX [Suspect]
     Indication: ANXIETY
     Dosage: UNK MG, 2X/DAY
     Route: 048

REACTIONS (6)
  - AGGRESSION [None]
  - AGITATION [None]
  - CHEST DISCOMFORT [None]
  - HOSTILITY [None]
  - SWOLLEN TONGUE [None]
  - THROAT TIGHTNESS [None]
